FAERS Safety Report 8400229-1 (Version None)
Quarter: 2012Q2

REPORT INFORMATION
  Report Type: 
  Country: None (occurrence: None)
  Receive Date: 20120531
  Receipt Date: 20120523
  Transmission Date: 20120825
  Serious: Yes (Other)
  Sender: FDA-Public Use
  Company Number: FR-ABBOTT-12P-056-0930099-00

PATIENT
  Sex: Female
  Weight: 50 kg

DRUGS (2)
  1. HUMIRA [Suspect]
     Indication: CROHN'S DISEASE
  2. HUMIRA [Suspect]
     Indication: ANKYLOSING SPONDYLITIS
     Route: 058
     Dates: start: 20111201, end: 20120501

REACTIONS (7)
  - VOMITING [None]
  - VULVOVAGINAL RASH [None]
  - RASH [None]
  - CHEILITIS [None]
  - HEADACHE [None]
  - ALLERGIC OEDEMA [None]
  - TOXIC EPIDERMAL NECROLYSIS [None]
